FAERS Safety Report 9203708 (Version 1)
Quarter: 2013Q1

REPORT INFORMATION
  Report Type: Spontaneous
  Country: US (occurrence: None)
  Receive Date: 20120709
  Receipt Date: 20120709
  Transmission Date: 20140127
  Serious: Yes (Hospitalization)
  Sender: FDA-Public Use
  Company Number: PHEH2011US012233

PATIENT
  Age: 32 Year
  Sex: Male

DRUGS (9)
  1. GLEEVEC [Suspect]
     Indication: CHRONIC MYELOID LEUKAEMIA
     Dates: end: 201110
  2. HYDREA (HYDROXYCARBAMIDE) [Concomitant]
  3. CHEMOTHERAPEUTICS (NO INGREDIENTS/SUBSTANCES) [Concomitant]
  4. CARASATE [Concomitant]
  5. PROTONIX (PANTOPRAXZOLE) [Concomitant]
  6. TRAMADOL (TRAMADOL) [Concomitant]
  7. CLARITIN (LORATADINE) [Concomitant]
  8. IBUPROFEN (IBUPROFEN) [Concomitant]
  9. PHENERGAN (PROMETHAZINE HYDROCHLORIDE) [Concomitant]

REACTIONS (3)
  - Chronic myeloid leukaemia [None]
  - Malaise [None]
  - Neoplasm malignant [None]
